FAERS Safety Report 7172976-3 (Version None)
Quarter: 2010Q4

REPORT INFORMATION
  Report Type: 
  Country: None (occurrence: None)
  Receive Date: 20101219
  Receipt Date: 20100217
  Transmission Date: 20110411
  Serious: No
  Sender: FDA-Public Use
  Company Number: US-AMGEN-KDL393435

PATIENT

DRUGS (6)
  1. ENBREL [Suspect]
     Indication: PRODUCT USED FOR UNKNOWN INDICATION
     Dosage: 25 MG, 2 TIMES/WK
     Route: 058
  2. MONTELUKAST [Concomitant]
     Dosage: 10 MG, UNK
  3. CETIRIZINE HYDROCHLORIDE [Concomitant]
     Dosage: 10 MG, UNK
  4. RANITIDINE HYDROCHLORIDE [Concomitant]
     Dosage: 150 MG, UNK
  5. HYDROCORTISONE [Concomitant]
     Dosage: UNK UNK, UNK
  6. CORTISONE [Concomitant]
     Dosage: UNK UNK, UNK

REACTIONS (1)
  - RASH PRURITIC [None]
